FAERS Safety Report 7741916-8 (Version None)
Quarter: 2011Q3

REPORT INFORMATION
  Report Type: 
  Country: None (occurrence: None)
  Receive Date: 20110906
  Receipt Date: 20110823
  Transmission Date: 20111222
  Serious: No
  Sender: FDA-Public Use
  Company Number: THQ2011A05295

PATIENT
  Age: 55 Year
  Sex: Male

DRUGS (1)
  1. ACTOS [Suspect]
     Indication: DIABETES MELLITUS
     Dosage: 30 MG (30 MG, 1 IN 1 D) PER ORAL
     Route: 048
     Dates: start: 20090713, end: 20110815

REACTIONS (5)
  - URINARY TRACT INFECTION [None]
  - BLADDER TRANSITIONAL CELL CARCINOMA [None]
  - BLADDER CANCER [None]
  - RENAL FAILURE [None]
  - RED BLOOD CELLS URINE [None]
